FAERS Safety Report 8458480-0 (Version None)
Quarter: 2012Q2

REPORT INFORMATION
  Report Type: 
  Country: None (occurrence: None)
  Receive Date: 20120615
  Receipt Date: 20120601
  Transmission Date: 20120825
  Serious: Yes (Hospitalization, Other)
  Sender: FDA-Public Use
  Company Number: 2012AP001687

PATIENT
  Age: 65 Year
  Sex: Male

DRUGS (1)
  1. AMIODARONE HYDROCHLORIDE [Suspect]
     Indication: PRODUCT USED FOR UNKNOWN INDICATION
     Dosage: 400 MG;QD; 200 MG;QD

REACTIONS (7)
  - HYPERTHYROIDISM [None]
  - LYMPHOID TISSUE HYPERPLASIA [None]
  - DYSPNOEA EXERTIONAL [None]
  - EOSINOPHILIC PNEUMONIA [None]
  - PULMONARY TOXICITY [None]
  - COUGH [None]
  - LUNG NEOPLASM [None]
